FAERS Safety Report 15980733 (Version 1)
Quarter: 2019Q1

REPORT INFORMATION
  Report Type: Spontaneous
  Country: US (occurrence: US)
  Receive Date: 20190219
  Receipt Date: 20190219
  Transmission Date: 20190418
  Serious: No
  Sender: FDA-Public Use
  Company Number: US-SA-2018SA134499

PATIENT
  Sex: Female

DRUGS (4)
  1. HYDROXYCHLOROQUINE [Concomitant]
     Active Substance: HYDROXYCHLOROQUINE
     Dosage: UNK
     Route: 065
     Dates: start: 2014
  2. SULFASALAZINE. [Suspect]
     Active Substance: SULFASALAZINE
     Dosage: UNK
     Route: 065
     Dates: start: 201504, end: 201511
  3. METHOTREXATE. [Suspect]
     Active Substance: METHOTREXATE
     Dosage: UNK
     Route: 065
     Dates: start: 2014, end: 2015
  4. ARAVA [Suspect]
     Active Substance: LEFLUNOMIDE
     Indication: PARKINSON^S DISEASE
     Dosage: 20 MG,QD
     Route: 048
     Dates: start: 2015

REACTIONS (2)
  - Liver function test increased [Unknown]
  - Drug intolerance [Unknown]
